FAERS Safety Report 15786582 (Version 4)
Quarter: 2019Q2

REPORT INFORMATION
  Report Type: Spontaneous
  Country: DE (occurrence: DE)
  Receive Date: 20190103
  Receipt Date: 20190416
  Transmission Date: 20190711
  Serious: Yes (Disabling)
  Sender: FDA-Public Use
  Company Number: DE-MYLANLABS-2018M1097588

PATIENT
  Age: 16 Year
  Sex: Female
  Weight: 65 kg

DRUGS (7)
  1. MIRTAZAPINE. [Suspect]
     Active Substance: MIRTAZAPINE
     Dosage: 7.5 MILLIGRAM, QD
     Route: 048
  2. PRONEURIN [Suspect]
     Active Substance: PROMETHAZINE HYDROCHLORIDE
     Indication: TENSION
     Dosage: 75 MILLIGRAM, QD
     Route: 048
     Dates: start: 20171117, end: 20171128
  3. CITALOPRAM [Suspect]
     Active Substance: CITALOPRAM HYDROBROMIDE
     Indication: TENSION
     Dosage: 20 MG, QMO
     Route: 048
     Dates: start: 20170917, end: 20180118
  4. MIRTAZAPINE. [Suspect]
     Active Substance: MIRTAZAPINE
     Indication: TENSION
     Dosage: 15 MILLIGRAM, QD
     Route: 048
     Dates: start: 20171023, end: 20180118
  5. FLUOXETINE [Suspect]
     Active Substance: FLUOXETINE HYDROCHLORIDE
     Indication: TENSION
     Dosage: 20 MILLIGRAM, QD
     Route: 048
     Dates: start: 20170901, end: 20170912
  6. PIPAMPERON [Suspect]
     Active Substance: PIPAMPERONE HYDROCHLORIDE
     Indication: TENSION
     Dosage: 40 MILLIGRAM, QD
     Route: 048
     Dates: start: 20171016, end: 20171023
  7. CITALOPRAM [Suspect]
     Active Substance: CITALOPRAM HYDROBROMIDE
     Dosage: 10 MILLIGRAM, QD
     Route: 048

REACTIONS (1)
  - Thyroiditis [Unknown]

NARRATIVE: CASE EVENT DATE: 20180129
